FAERS Safety Report 17394802 (Version 2)
Quarter: 2025Q3

REPORT INFORMATION
  Report Type: Spontaneous
  Country: EU (occurrence: EU)
  Receive Date: 20200210
  Receipt Date: 20250826
  Transmission Date: 20251021
  Serious: Yes (Hospitalization, Other)
  Sender: AUROBINDO
  Company Number: EU-EMA-DD-20200127-BHARDWAJ_R-184317

PATIENT
  Age: 55 Year
  Sex: Female

DRUGS (18)
  1. CIPROFLOXACIN [Suspect]
     Active Substance: CIPROFLOXACIN
     Indication: Device related infection
     Route: 065
  2. CIPROFLOXACIN [Suspect]
     Active Substance: CIPROFLOXACIN
     Indication: Bacterial infection
     Route: 065
     Dates: start: 2017, end: 2017
  3. DOXORUBICIN [Suspect]
     Active Substance: DOXORUBICIN
     Indication: Metastases to bone
     Route: 065
  4. DOXORUBICIN [Suspect]
     Active Substance: DOXORUBICIN
     Indication: Adrenocortical carcinoma
     Route: 065
     Dates: start: 201703
  5. DOXORUBICIN [Suspect]
     Active Substance: DOXORUBICIN
     Indication: Metastases to lung
  6. DOXORUBICIN [Suspect]
     Active Substance: DOXORUBICIN
     Indication: Metastases to liver
  7. ETOPOSIDE [Suspect]
     Active Substance: ETOPOSIDE
     Indication: Adrenocortical carcinoma
     Route: 065
  8. ETOPOSIDE [Suspect]
     Active Substance: ETOPOSIDE
     Indication: Metastases to liver
     Route: 065
     Dates: start: 201703
  9. ETOPOSIDE [Suspect]
     Active Substance: ETOPOSIDE
     Indication: Metastases to bone
  10. ETOPOSIDE [Suspect]
     Active Substance: ETOPOSIDE
     Indication: Metastases to lung
  11. MITOTANE [Suspect]
     Active Substance: MITOTANE
     Indication: Adrenocortical carcinoma
     Route: 065
  12. MITOTANE [Suspect]
     Active Substance: MITOTANE
     Indication: Metastases to bone
     Route: 065
     Dates: start: 201701
  13. MITOTANE [Suspect]
     Active Substance: MITOTANE
     Indication: Metastases to liver
  14. MITOTANE [Suspect]
     Active Substance: MITOTANE
     Indication: Metastases to lung
  15. CISPLATIN [Suspect]
     Active Substance: CISPLATIN
     Indication: Metastases to lung
     Route: 065
  16. CISPLATIN [Suspect]
     Active Substance: CISPLATIN
     Indication: Adrenocortical carcinoma
     Route: 065
     Dates: start: 201703
  17. CISPLATIN [Suspect]
     Active Substance: CISPLATIN
     Indication: Metastases to liver
  18. CEFTRIAXONE [Concomitant]
     Active Substance: CEFTRIAXONE
     Indication: Product used for unknown indication
     Route: 065

REACTIONS (3)
  - Device related infection [Recovered/Resolved]
  - Bacteraemia [Recovered/Resolved]
  - Infusion site reaction [Recovering/Resolving]

NARRATIVE: CASE EVENT DATE: 20170101
